FAERS Safety Report 5635246-8 (Version None)
Quarter: 2008Q1

REPORT INFORMATION
  Report Type: 
  Country: None (occurrence: None)
  Receive Date: 20080131
  Receipt Date: 20071203
  Transmission Date: 20080703
  Serious: No
  Sender: FDA-Public Use
  Company Number: 163-21880-07110616

PATIENT
  Age: 59 Year
  Sex: Female

DRUGS (2)
  1. REVLIMID [Suspect]
     Indication: MULTIPLE MYELOMA
     Dosage: 25 MG ALTERNATING WITH 10MG, DAILYX 21 DAYS, ORAL
     Route: 048
     Dates: start: 20070830, end: 20071101
  2. REVLIMID [Suspect]

REACTIONS (4)
  - BRONCHITIS [None]
  - HYPOAESTHESIA [None]
  - OEDEMA PERIPHERAL [None]
  - PNEUMONIA [None]
